FAERS Safety Report 6505470-0 (Version None)
Quarter: 2009Q4

REPORT INFORMATION
  Report Type: 
  Country: None (occurrence: None)
  Receive Date: 20091218
  Receipt Date: 20091208
  Transmission Date: 20100525
  Serious: Yes (Disabling)
  Sender: FDA-Public Use
  Company Number: GB-AMGEN-US280420

PATIENT
  Sex: Female
  Weight: 28.4 kg

DRUGS (3)
  1. ENBREL [Suspect]
     Indication: JUVENILE ARTHRITIS
     Route: 058
     Dates: start: 20070703, end: 20071001
  2. ENBREL [Suspect]
     Route: 058
     Dates: start: 20071022, end: 20080311
  3. METHOTREXATE [Concomitant]
     Route: 058

REACTIONS (4)
  - ABNORMAL BEHAVIOUR [None]
  - ANXIETY [None]
  - EMOTIONAL DISTRESS [None]
  - MENTAL DISORDER [None]
